FAERS Safety Report 13041816 (Version 1)
Quarter: 2016Q4

REPORT INFORMATION
  Report Type: Spontaneous
  Country: US (occurrence: US)
  Receive Date: 20161219
  Receipt Date: 20161219
  Transmission Date: 20170207
  Serious: No
  Sender: FDA-Public Use
  Company Number: US-ROCHE-1151389

PATIENT
  Age: 61 Year
  Sex: Female

DRUGS (1)
  1. ZELBORAF [Suspect]
     Active Substance: VEMURAFENIB
     Indication: METASTATIC MALIGNANT MELANOMA
     Route: 065
     Dates: start: 201202

REACTIONS (5)
  - Fatigue [Recovering/Resolving]
  - Rash [Recovering/Resolving]
  - Iritis [Recovering/Resolving]
  - Alopecia [Recovering/Resolving]
  - Diarrhoea [Recovering/Resolving]
